FAERS Safety Report 13589186 (Version 1)
Quarter: 2017Q2

REPORT INFORMATION
  Report Type: Spontaneous
  Country: US (occurrence: US)
  Receive Date: 20170526
  Receipt Date: 20170526
  Transmission Date: 20170830
  Serious: Yes (Disabling)
  Sender: FDA-Public Use
  Company Number: None

PATIENT
  Age: 38 Year
  Sex: Female
  Weight: 94.95 kg

DRUGS (2)
  1. OMEPRAZOLE. [Concomitant]
     Active Substance: OMEPRAZOLE
  2. METOPROLOL SUCCINATE ER 25 [Suspect]
     Active Substance: METOPROLOL SUCCINATE
     Dosage: ?          QUANTITY:1 TABLET(S);?
     Route: 048
     Dates: start: 20170116, end: 20170207

REACTIONS (6)
  - Oesophageal spasm [None]
  - Oesophageal hypomotility [None]
  - Choking [None]
  - Feeding disorder [None]
  - Dysphagia [None]
  - Weight decreased [None]

NARRATIVE: CASE EVENT DATE: 20170116
